FAERS Safety Report 6574284-8 (Version None)
Quarter: 2010Q1

REPORT INFORMATION
  Report Type: 
  Country: None (occurrence: None)
  Receive Date: 20100208
  Receipt Date: 20100129
  Transmission Date: 20100710
  Serious: Yes (Other)
  Sender: FDA-Public Use
  Company Number: US-ABBOTT-10P-163-0622924-00

PATIENT
  Sex: Female
  Weight: 91.708 kg

DRUGS (13)
  1. HUMIRA [Suspect]
     Indication: RHEUMATOID ARTHRITIS
     Dates: start: 20050101, end: 20090301
  2. HUMIRA [Suspect]
     Indication: ANKYLOSING SPONDYLITIS
  3. METHOTREXATE [Concomitant]
     Indication: RHEUMATOID ARTHRITIS
  4. METHOTREXATE [Concomitant]
     Indication: ANKYLOSING SPONDYLITIS
  5. MOBIC [Concomitant]
     Indication: RHEUMATOID ARTHRITIS
  6. MOBIC [Concomitant]
     Indication: ANKYLOSING SPONDYLITIS
  7. FOLIC ACID [Concomitant]
     Indication: RHEUMATOID ARTHRITIS
  8. FOLIC ACID [Concomitant]
     Indication: ANKYLOSING SPONDYLITIS
  9. PAXIL [Concomitant]
     Indication: ANXIETY
  10. ZYRTEC [Concomitant]
     Indication: HYPERSENSITIVITY
  11. TOPROL-XL [Concomitant]
     Indication: ARRHYTHMIA
  12. ELAVIL [Concomitant]
     Indication: FACIAL PAIN
  13. PREDNISONE TAB [Concomitant]
     Indication: IRITIS

REACTIONS (4)
  - CANDIDIASIS [None]
  - GOITRE [None]
  - MUCOSAL DISCOLOURATION [None]
  - PHARYNGEAL MASS [None]
